FAERS Safety Report 6058769-9 (Version None)
Quarter: 2009Q1

REPORT INFORMATION
  Report Type: 
  Country: None (occurrence: None)
  Receive Date: 20090128
  Receipt Date: 20090115
  Transmission Date: 20090719
  Serious: Yes (Hospitalization)
  Sender: FDA-Public Use
  Company Number: CHPA2009GB00440

PATIENT
  Age: 60 Year
  Sex: Male

DRUGS (1)
  1. LAMISIL [Suspect]
     Indication: SKIN IRRITATION

REACTIONS (3)
  - APPLICATION SITE BURN [None]
  - HYPERSENSITIVITY [None]
  - PAIN [None]
